FAERS Safety Report 24041952 (Version 1)
Quarter: 2024Q3

REPORT INFORMATION
  Report Type: Report from Study
  Country: CA (occurrence: CA)
  Receive Date: 20240702
  Receipt Date: 20240702
  Transmission Date: 20241017
  Serious: Yes (Other)
  Sender: GLAXOSMITHKLINE
  Company Number: CA-GLAXOSMITHKLINE-CA2024079748

PATIENT

DRUGS (4)
  1. ALBUTEROL SULFATE [Suspect]
     Active Substance: ALBUTEROL SULFATE
     Indication: Product used for unknown indication
     Dosage: UNK
  2. BREO ELLIPTA [Suspect]
     Active Substance: FLUTICASONE FUROATE\VILANTEROL TRIFENATATE
     Indication: Product used for unknown indication
     Dosage: UNK
  3. QUETIAPINE [Concomitant]
     Active Substance: QUETIAPINE
     Indication: Product used for unknown indication
     Dosage: UNK UNK, QD
  4. ROSUVASTATIN [Concomitant]
     Active Substance: ROSUVASTATIN
     Indication: Product used for unknown indication
     Dosage: UNK UNK, QD

REACTIONS (12)
  - Pulmonary congestion [Unknown]
  - Dyspnoea [Unknown]
  - Sputum discoloured [Unknown]
  - Chest discomfort [Unknown]
  - Wheezing [Unknown]
  - Cough [Unknown]
  - Increased bronchial secretion [Unknown]
  - Dyspnoea exertional [Unknown]
  - Loss of personal independence in daily activities [Unknown]
  - Anxiety disorder due to a general medical condition [Unknown]
  - Sleep disorder due to a general medical condition [Unknown]
  - Asthenia [Unknown]
